FAERS Safety Report 22594274 (Version 1)
Quarter: 2023Q2

REPORT INFORMATION
  Report Type: Report from Study
  Country: GB (occurrence: GB)
  Receive Date: 20230613
  Receipt Date: 20230613
  Transmission Date: 20230722
  Serious: Yes (Life-Threatening, Other)
  Sender: FDA-Public Use
  Company Number: GB-BRISTOL-MYERS SQUIBB COMPANY-2023-077634

PATIENT
  Age: 58 Year
  Sex: Female

DRUGS (3)
  1. RITUXIMAB [Suspect]
     Active Substance: RITUXIMAB
     Dosage: UNK
  2. ETANERCEPT [Suspect]
     Active Substance: ETANERCEPT
     Dosage: UNK
  3. ORENCIA [Suspect]
     Active Substance: ABATACEPT
     Dosage: UNK

REACTIONS (4)
  - Pneumonia [Unknown]
  - Bronchospasm [Unknown]
  - Rash [Unknown]
  - Mouth ulceration [Unknown]
